FAERS Safety Report 4613478-5 (Version None)
Quarter: 2005Q1

REPORT INFORMATION
  Report Type: 
  Country: None (occurrence: None)
  Receive Date: 20050321
  Receipt Date: 20050119
  Transmission Date: 20050727
  Serious: Yes (Hospitalization)
  Sender: FDA-Public Use
  Company Number: FR-BRISTOL-MYERS SQUIBB COMPANY-12830345

PATIENT
  Age: 56 Year
  Sex: Female

DRUGS (6)
  1. TAXOL [Suspect]
     Route: 042
     Dates: start: 20040610, end: 20040610
  2. CISPLATIN [Suspect]
     Route: 042
     Dates: start: 20040610, end: 20040610
  3. ISOPTIN [Suspect]
     Route: 048
     Dates: start: 20040610, end: 20040610
  4. PREVISCAN [Suspect]
  5. DI-ANTALVIC [Suspect]
  6. NEURONTIN [Concomitant]

REACTIONS (9)
  - ASTHENIA [None]
  - BLOOD PRESSURE SYSTOLIC INCREASED [None]
  - HEAD INJURY [None]
  - HEADACHE [None]
  - LOSS OF CONSCIOUSNESS [None]
  - MALAISE [None]
  - OVERDOSE [None]
  - VOMITING [None]
  - WOUND [None]
